FAERS Safety Report 9143185 (Version 3)
Quarter: 2013Q2

REPORT INFORMATION
  Report Type: Spontaneous
  Country: JP (occurrence: JP)
  Receive Date: 20130306
  Receipt Date: 20130405
  Transmission Date: 20140414
  Serious: Yes (Hospitalization, Other)
  Sender: FDA-Public Use
  Company Number: PHHY2013JP020359

PATIENT
  Age: 21 Year
  Sex: Male

DRUGS (6)
  1. TEGRETOL [Suspect]
     Indication: EPILEPSY
     Dosage: 200 MG, DAILY
     Route: 048
     Dates: end: 20130227
  2. E KEPPRA [Concomitant]
     Indication: EPILEPSY
     Dosage: UNK UKN, UNK
     Route: 048
  3. LEVOFLOXACIN HYDRATE [Concomitant]
     Route: 048
  4. ACETAMINOPHEN [Concomitant]
     Route: 048
  5. MEDICON (DEXTROMETHORPHAN HYDROBROMIDE) [Concomitant]
     Route: 048
  6. RUEFRIEN [Concomitant]
     Route: 048

REACTIONS (2)
  - Altered state of consciousness [Recovered/Resolved]
  - Anticonvulsant drug level increased [Recovered/Resolved]
